FAERS Safety Report 9723759 (Version 2)
Quarter: 2014Q1

REPORT INFORMATION
  Report Type: Spontaneous
  Country: ES (occurrence: ES)
  Receive Date: 20131202
  Receipt Date: 20140102
  Transmission Date: 20141002
  Serious: Yes (Other)
  Sender: FDA-Public Use
  Company Number: ES-PFIZER INC-2013338257

PATIENT
  Age: 81 Year
  Sex: Female

DRUGS (2)
  1. ZYVOXID [Suspect]
     Dosage: 600 MG, 2X/DAY (600 MG EVERY 12 HOURS)
     Route: 042
  2. MEROPENEM [Concomitant]

REACTIONS (2)
  - Cardiac fibrillation [Unknown]
  - Hypertension [Unknown]
